FAERS Safety Report 13594883 (Version 2)
Quarter: 2017Q2

REPORT INFORMATION
  Report Type: Spontaneous
  Country: FR (occurrence: FR)
  Receive Date: 20170530
  Receipt Date: 20170602
  Transmission Date: 20170830
  Serious: Yes (Other)
  Sender: FDA-Public Use
  Company Number: FR-009507513-1705FRA012374

PATIENT
  Age: 59 Year
  Sex: Male

DRUGS (1)
  1. EZETROL [Suspect]
     Active Substance: EZETIMIBE
     Indication: HYPERCHOLESTEROLAEMIA
     Dosage: 1 DF, QD
     Route: 048
     Dates: start: 2014, end: 20170516

REACTIONS (13)
  - Diarrhoea [Unknown]
  - Vomiting [Unknown]
  - Chest pain [Unknown]
  - Dry mouth [Unknown]
  - Decreased appetite [Recovering/Resolving]
  - Chest discomfort [Unknown]
  - Weight decreased [Unknown]
  - Arthralgia [Unknown]
  - Feeling hot [Unknown]
  - Foreign body sensation in eyes [Recovering/Resolving]
  - Fatigue [Recovering/Resolving]
  - Pain in extremity [Recovering/Resolving]
  - Peripheral swelling [Unknown]

NARRATIVE: CASE EVENT DATE: 20170403
